FAERS Safety Report 19909180 (Version 1)
Quarter: 2021Q4

REPORT INFORMATION
  Report Type: Spontaneous
  Country: US (occurrence: US)
  Receive Date: 20211001
  Receipt Date: 20211001
  Transmission Date: 20220303
  Serious: No
  Sender: FDA-Public Use
  Company Number: US-AMARIN PHARMA, INC.-2021AMR000010

PATIENT
  Age: 51 Year
  Sex: Male
  Weight: 97.61 kg

DRUGS (5)
  1. VASCEPA [Suspect]
     Active Substance: ICOSAPENT ETHYL
     Indication: Blood cholesterol increased
     Route: 048
     Dates: start: 202009
  2. VASCEPA [Suspect]
     Active Substance: ICOSAPENT ETHYL
     Indication: Low density lipoprotein increased
  3. CHOLESTENE RED YEAST RICE [Concomitant]
     Indication: Blood cholesterol increased
     Route: 048
     Dates: start: 202009
  4. COENZYME Q10 [Concomitant]
     Active Substance: DIETARY SUPPLEMENT\UBIDECARENONE
     Indication: Product used for unknown indication
     Route: 048
     Dates: start: 202009
  5. ASPIRIN [Concomitant]
     Active Substance: ASPIRIN
     Indication: Product used for unknown indication
     Route: 048
     Dates: start: 202009

REACTIONS (2)
  - Eructation [Not Recovered/Not Resolved]
  - Product taste abnormal [Not Recovered/Not Resolved]
